FAERS Safety Report 11512421 (Version 1)
Quarter: 2015Q3

REPORT INFORMATION
  Report Type: Spontaneous
  Country: SE (occurrence: SE)
  Receive Date: 20150916
  Receipt Date: 20150916
  Transmission Date: 20151125
  Serious: Yes (Other)
  Sender: FDA-Public Use
  Company Number: SE-ACCORD-033776

PATIENT
  Age: 91 Year
  Sex: Female

DRUGS (14)
  1. VISCOTEARS [Concomitant]
     Active Substance: CARBOMER
  2. VOLTAREN [Concomitant]
     Active Substance: DICLOFENAC SODIUM
     Dosage: 11. 6 MG/G GEL
  3. TROMBYL [Concomitant]
     Active Substance: ASPIRIN
  4. INOLAXOL [Concomitant]
     Dosage: GRANULES IN SACHET
  5. KALCIPOS-D [Concomitant]
     Active Substance: CALCIUM CARBONATE\CHOLECALCIFEROL
  6. TERRACORTRIL MED POLYMYXIN B [Concomitant]
     Dosage: EYE/EARDROPS, SUSPENSION
  7. ALVEDON [Concomitant]
     Active Substance: ACETAMINOPHEN
  8. DONEPEZIL ACCORD [Suspect]
     Active Substance: DONEPEZIL
     Indication: DEMENTIA ALZHEIMER^S TYPE
     Dosage: FILM-COATED TABLET
     Dates: start: 20150724, end: 20150805
  9. FURIX [Concomitant]
     Active Substance: FUROSEMIDE
  10. OCULENTUM SIMPLEX [Concomitant]
  11. BION TEARS [Concomitant]
     Active Substance: DEXTRAN 70\HYPROMELLOSE 2910 (4000 MPA.S)
  12. CITALOPRAM [Concomitant]
     Active Substance: CITALOPRAM HYDROBROMIDE
  13. EMOVAT [Concomitant]
     Dosage: 0.05% CREAM
  14. HEMINEVRIN [Concomitant]
     Active Substance: CLOMETHIAZOLE

REACTIONS (4)
  - Agitation [Recovered/Resolved]
  - Personality change [Recovered/Resolved]
  - Aggression [Recovered/Resolved]
  - Insomnia [Recovered/Resolved]

NARRATIVE: CASE EVENT DATE: 201507
